FAERS Safety Report 11142093 (Version 1)
Quarter: 2015Q2

REPORT INFORMATION
  Report Type: Report from Study
  Country: US (occurrence: US)
  Receive Date: 20150527
  Receipt Date: 20150527
  Transmission Date: 20150821
  Serious: Yes (Other)
  Sender: FDA-Public Use
  Company Number: US-SA-2015SA070914

PATIENT
  Age: 71 Year
  Sex: Male

DRUGS (1)
  1. LANTUS [Suspect]
     Active Substance: INSULIN GLARGINE
     Indication: DIABETES MELLITUS
     Dosage: DOSE: 50
     Route: 065
     Dates: start: 19950519

REACTIONS (3)
  - Cardiac disorder [Unknown]
  - Cerebrovascular accident [Unknown]
  - Arterial occlusive disease [Unknown]
